FAERS Safety Report 6895637-4 (Version None)
Quarter: 2010Q3

REPORT INFORMATION
  Report Type: 
  Country: None (occurrence: None)
  Receive Date: 20100802
  Receipt Date: 20100721
  Transmission Date: 20110219
  Serious: Yes (Hospitalization)
  Sender: FDA-Public Use
  Company Number: NL-AMGEN-US425481

PATIENT
  Sex: Female

DRUGS (10)
  1. ENBREL [Suspect]
     Indication: ANKYLOSING SPONDYLITIS
     Dates: start: 20100701
  2. DIAZEPAM [Concomitant]
  3. BETAHISTINE [Concomitant]
  4. VITAMIN D [Concomitant]
  5. OMEPRAZOLE [Concomitant]
  6. LIPITOR [Concomitant]
  7. SULFASALAZINE [Concomitant]
     Dosage: FOUR TIMES PER DAY
  8. DURAGESIC-100 [Concomitant]
  9. INSULIN [Concomitant]
  10. AMLODIPINE [Concomitant]

REACTIONS (12)
  - ASTHENIA [None]
  - BLOOD GLUCOSE FLUCTUATION [None]
  - CIRCULATORY COLLAPSE [None]
  - CONDITION AGGRAVATED [None]
  - FATIGUE [None]
  - HEADACHE [None]
  - MEMORY IMPAIRMENT [None]
  - MENORRHAGIA [None]
  - PAIN [None]
  - PRURITUS GENERALISED [None]
  - SENSATION OF HEAVINESS [None]
  - WEIGHT INCREASED [None]
